FAERS Safety Report 6956857-3 (Version None)
Quarter: 2010Q3

REPORT INFORMATION
  Report Type: 
  Country: None (occurrence: None)
  Receive Date: 20100830
  Receipt Date: 20100728
  Transmission Date: 20110219
  Serious: Yes (Hospitalization, Other)
  Sender: FDA-Public Use
  Company Number: PHEH2006US01255

PATIENT
  Sex: Male
  Weight: 80.725 kg

DRUGS (36)
  1. AREDIA [Suspect]
     Indication: METASTASES TO BONE
     Dosage: UNK,UNK
     Dates: start: 20020801
  2. ZOMETA [Suspect]
     Dosage: 4MG IV Q4WKS
     Dates: start: 20041001
  3. PROCRIT [Concomitant]
     Dosage: 40,000 UNITS WEEKLY
  4. IRON SUPPLEMENTS [Concomitant]
     Dosage: 325 MG, QD
  5. NEURONTIN [Concomitant]
     Dosage: 600 MG, BID
  6. FOLIC ACID [Concomitant]
     Dosage: 1 MG, QD
  7. BUMEX [Concomitant]
     Dosage: 1 MG, UNK
  8. NAPROXEN [Concomitant]
     Dosage: 500 MG, BID
  9. K-DUR [Concomitant]
     Dosage: 20 MEQ, BID
  10. OXYCONTIN [Concomitant]
     Dosage: UNK, BID
  11. GABAPENTIN [Concomitant]
  12. PROTONIX [Concomitant]
  13. MULTI-VITAMINS [Concomitant]
  14. SENNA [Concomitant]
  15. DOCUSATE [Concomitant]
  16. TEMAZEPAM [Concomitant]
  17. DEXAMETHASONE [Concomitant]
  18. AZITHROMYCIN [Concomitant]
  19. MYCELEX [Concomitant]
  20. KEFLEX [Concomitant]
  21. CHLORHEXIDINE GLUCONATE [Concomitant]
  22. CEFPROZIL [Concomitant]
  23. PROMETHAZINE [Concomitant]
  24. PERI-COLACE [Concomitant]
  25. PROCHLORPERAZINE [Concomitant]
  26. COMBIVENT                               /GFR/ [Concomitant]
  27. DICLOXACILLIN [Concomitant]
  28. COUMADIN [Concomitant]
  29. ZOFRAN [Concomitant]
  30. COLACE [Concomitant]
  31. ARANESP [Concomitant]
  32. VELCADE [Concomitant]
  33. PREVACID [Concomitant]
     Dosage: 30 MG, QD
     Route: 048
  34. GLUCOSAMINE SULFATE W/CHONDROITIN [Concomitant]
     Dosage: 2 DF, TID
     Route: 048
  35. CENTRUM SILVER [Concomitant]
     Dosage: 1 DF, UNK
     Route: 048
  36. ASCORBIC ACID [Concomitant]

REACTIONS (82)
  - ABSCESS JAW [None]
  - ACTINOMYCOSIS [None]
  - ANGINA PECTORIS [None]
  - ASTHENIA [None]
  - BIOPSY [None]
  - BLISTER [None]
  - BONE DISORDER [None]
  - BONE EROSION [None]
  - BONE FISTULA [None]
  - BONE FRAGMENTATION [None]
  - BUNDLE BRANCH BLOCK RIGHT [None]
  - CELLULITIS [None]
  - CENTRAL VENOUS CATHETERISATION [None]
  - COMPUTERISED TOMOGRAM ABNORMAL [None]
  - CONFUSIONAL STATE [None]
  - CONSTIPATION [None]
  - COUGH [None]
  - DEBRIDEMENT [None]
  - DENTAL CARE [None]
  - DENTAL CARIES [None]
  - DISORIENTATION [None]
  - DYSPHONIA [None]
  - DYSPNOEA [None]
  - DYSPNOEA EXERTIONAL [None]
  - EXOSTOSIS [None]
  - FALL [None]
  - FEELING COLD [None]
  - FISTULA [None]
  - FLUSHING [None]
  - GAIT DISTURBANCE [None]
  - GINGIVAL DISORDER [None]
  - HAIR GROWTH ABNORMAL [None]
  - HEADACHE [None]
  - HIP ARTHROPLASTY [None]
  - HYPERBARIC OXYGEN THERAPY [None]
  - HYPOACUSIS [None]
  - HYPOAESTHESIA [None]
  - IMPAIRED HEALING [None]
  - INFLAMMATION [None]
  - INGROWING NAIL [None]
  - LEUKOPENIA [None]
  - LOOSE TOOTH [None]
  - MENTAL STATUS CHANGES [None]
  - MUCOSAL HAEMORRHAGE [None]
  - MULTIPLE MYELOMA [None]
  - NAIL DISCOLOURATION [None]
  - NAIL DYSTROPHY [None]
  - NAIL HYPERTROPHY [None]
  - NAIL OPERATION [None]
  - NASAL CONGESTION [None]
  - NAUSEA [None]
  - OBESITY [None]
  - OEDEMA PERIPHERAL [None]
  - ONYCHALGIA [None]
  - ONYCHOMYCOSIS [None]
  - ORAL DISORDER [None]
  - OSTEOARTHRITIS [None]
  - OSTEOLYSIS [None]
  - OSTEOMYELITIS [None]
  - OSTEONECROSIS OF JAW [None]
  - PAIN IN JAW [None]
  - PARAPROTEINAEMIA [None]
  - PATHOLOGICAL FRACTURE [None]
  - PERIPHERAL VASCULAR DISORDER [None]
  - PHYSIOTHERAPY [None]
  - PNEUMONIA [None]
  - POOR PERIPHERAL CIRCULATION [None]
  - PROTHROMBIN TIME PROLONGED [None]
  - PULSE PRESSURE DECREASED [None]
  - PYREXIA [None]
  - RADIOTHERAPY [None]
  - SEPSIS [None]
  - SINUSITIS [None]
  - SKIN ULCER [None]
  - SWELLING [None]
  - THROMBOCYTOPENIA [None]
  - TOOTH EXTRACTION [None]
  - TOOTHACHE [None]
  - VISUAL ACUITY REDUCED [None]
  - WOUND DEHISCENCE [None]
  - WOUND DRAINAGE [None]
  - X-RAY ABNORMAL [None]
